FAERS Safety Report 5604163-1 (Version None)
Quarter: 2008Q1

REPORT INFORMATION
  Report Type: 
  Country: None (occurrence: None)
  Receive Date: 20080123
  Receipt Date: 20080114
  Transmission Date: 20080703
  Serious: Yes (Death)
  Sender: FDA-Public Use
  Company Number: B0503187A

PATIENT
  Age: 40 Year
  Sex: Male

DRUGS (8)
  1. DIAZEPAM [Suspect]
     Dosage: ORAL
     Route: 048
  2. QUETIAPINE FUMARATE [Suspect]
     Dosage: ORAL
     Route: 048
  3. BENZODIAZEPINES (FORMULATION UNKNOWN) (BENZODIAZEPINES) [Suspect]
     Dosage: ORAL
     Route: 048
  4. LAMICTAL [Suspect]
     Dosage: ORAL
     Route: 048
  5. ZOLPIDEM TARTRATE [Suspect]
     Dosage: ORAL
     Route: 048
  6. IBUPROFEN [Suspect]
     Dosage: ORAL
     Route: 048
  7. LORATADINE [Suspect]
     Dosage: ORAL
     Route: 048
  8. TIAGABINE HYDROCHLORIDE (FORMULATION UNKNOWN) (TIAGABINE HYDROCHLORIDE [Suspect]
     Dosage: ORAL
     Route: 048

REACTIONS (1)
  - COMPLETED SUICIDE [None]
